FAERS Safety Report 17054663 (Version 2)
Quarter: 2019Q4

REPORT INFORMATION
  Report Type: Spontaneous
  Country: SE (occurrence: SE)
  Receive Date: 20191120
  Receipt Date: 20191226
  Transmission Date: 20200122
  Serious: Yes (Hospitalization)
  Sender: FDA-Public Use
  Company Number: SE-MYLANLABS-2019M1110630

PATIENT
  Age: 64 Year
  Sex: Female

DRUGS (5)
  1. SERTRALINE [Suspect]
     Active Substance: SERTRALINE HYDROCHLORIDE
     Indication: PRODUCT USED FOR UNKNOWN INDICATION
     Dosage: UNK
     Route: 048
     Dates: start: 20190405, end: 20190405
  2. STESOLID [Concomitant]
     Active Substance: DIAZEPAM
     Dosage: 6 MILLIGRAM
     Route: 048
  3. OLANZAPINE. [Concomitant]
     Active Substance: OLANZAPINE
     Dosage: 2.5 MILLIGRAM
     Route: 048
  4. LERGIGAN (PROMETHAZINE) [Suspect]
     Active Substance: PROMETHAZINE HYDROCHLORIDE
     Indication: PRODUCT USED FOR UNKNOWN INDICATION
     Dosage: 150 MILLIGRAM
     Route: 048
     Dates: start: 20190405, end: 20190405
  5. IMOVANE [Suspect]
     Active Substance: ZOPICLONE
     Indication: PRODUCT USED FOR UNKNOWN INDICATION
     Dosage: UNK
     Route: 048
     Dates: start: 20190405, end: 20190405

REACTIONS (4)
  - Intentional self-injury [Unknown]
  - Fatigue [Unknown]
  - Depressed level of consciousness [Unknown]
  - Intentional overdose [Unknown]

NARRATIVE: CASE EVENT DATE: 20190405
